FAERS Safety Report 25281586 (Version 2)
Quarter: 2025Q3

REPORT INFORMATION
  Report Type: Spontaneous
  Country: US (occurrence: US)
  Receive Date: 20250508
  Receipt Date: 20250711
  Transmission Date: 20251021
  Serious: Yes (Other)
  Sender: CELLTRION
  Company Number: US-CELLTRION INC.-2025US013341

PATIENT

DRUGS (2)
  1. INFLECTRA [Suspect]
     Active Substance: INFLIXIMAB-DYYB
     Indication: Crohn^s disease
     Route: 042
     Dates: start: 202501
  2. INFLECTRA [Suspect]
     Active Substance: INFLIXIMAB-DYYB
     Route: 042
     Dates: start: 20250424

REACTIONS (6)
  - Heart rate increased [Unknown]
  - Incorrect dose administered [Unknown]
  - Feeling hot [Unknown]
  - Nausea [Unknown]
  - Insurance issue [Unknown]
  - Underdose [Unknown]

NARRATIVE: CASE EVENT DATE: 20250424
